FAERS Safety Report 5920730-X (Version None)
Quarter: 2008Q4

REPORT INFORMATION
  Report Type: 
  Country: None (occurrence: None)
  Receive Date: 20081016
  Receipt Date: 20080916
  Transmission Date: 20090506
  Serious: No
  Sender: FDA-Public Use
  Company Number: US-BAYER-200833125NA

PATIENT
  Age: 29 Year
  Sex: Female
  Weight: 54 kg

DRUGS (1)
  1. MIRENA [Suspect]
     Indication: CONTRACEPTION
     Route: 015
     Dates: start: 20080709, end: 20080911

REACTIONS (4)
  - ANORGASMIA [None]
  - FEELING ABNORMAL [None]
  - LIBIDO DECREASED [None]
  - VULVOVAGINAL DRYNESS [None]
